FAERS Safety Report 6220418-4 (Version None)
Quarter: 2009Q2

REPORT INFORMATION
  Report Type: 
  Country: None (occurrence: None)
  Receive Date: 20090605
  Receipt Date: 20090527
  Transmission Date: 20091009
  Serious: Yes (Disabling, Other)
  Sender: FDA-Public Use
  Company Number: US-WYE-H08831309

PATIENT
  Sex: Male

DRUGS (3)
  1. PRISTIQ [Suspect]
     Indication: ANXIETY
     Dosage: 50 MG, FREQUENCY, ORAL
     Route: 048
     Dates: start: 20090301
  2. PRISTIQ [Suspect]
     Indication: DEPRESSION
     Dosage: 50 MG, FREQUENCY, ORAL
     Route: 048
     Dates: start: 20090301
  3. AMBIEN [Concomitant]

REACTIONS (1)
  - AKATHISIA [None]
